FAERS Safety Report 25261625 (Version 1)
Quarter: 2025Q2

REPORT INFORMATION
  Report Type: Spontaneous
  Country: DE (occurrence: DE)
  Receive Date: 20250502
  Receipt Date: 20250502
  Transmission Date: 20250716
  Serious: Yes (Other)
  Sender: AMGEN
  Company Number: DE-AMGEN-DEUSP2025082304

PATIENT
  Age: 37 Year
  Sex: Female

DRUGS (11)
  1. ECULIZUMAB [Suspect]
     Active Substance: ECULIZUMAB
     Indication: Myasthenia gravis
     Route: 065
  2. AZATHIOPRINE [Concomitant]
     Active Substance: AZATHIOPRINE
     Route: 065
  3. HUMAN IMMUNOGLOBULIN G [Concomitant]
     Active Substance: HUMAN IMMUNOGLOBULIN G
     Route: 040
  4. RITUXIMAB [Concomitant]
     Active Substance: RITUXIMAB
     Route: 065
  5. GENETICALLY-MODIFIED AUTOLOGOUS T CELLS NOS [Concomitant]
     Active Substance: GENETICALLY-MODIFIED AUTOLOGOUS T CELLS NOS
     Route: 065
  6. GENETICALLY-MODIFIED AUTOLOGOUS T CELLS NOS [Concomitant]
     Active Substance: GENETICALLY-MODIFIED AUTOLOGOUS T CELLS NOS
     Route: 065
  7. PYRIDOSTIGMINE [Concomitant]
     Active Substance: PYRIDOSTIGMINE
     Dosage: 120 MILLIGRAM, QD
     Route: 065
  8. PYRIDOSTIGMINE [Concomitant]
     Active Substance: PYRIDOSTIGMINE
     Dosage: 90 MILLIGRAM, QD
     Route: 065
  9. FLUDARABINE [Concomitant]
     Active Substance: FLUDARABINE PHOSPHATE
     Route: 065
  10. CYCLOPHOSPHAMIDE [Concomitant]
     Active Substance: CYCLOPHOSPHAMIDE
     Route: 065
  11. PREDNISOLONE [Concomitant]
     Active Substance: PREDNISOLONE
     Dosage: 4 MILLIGRAM, QD
     Route: 065

REACTIONS (4)
  - Rheumatoid arthritis [Unknown]
  - Myasthenia gravis [Unknown]
  - Infection [Unknown]
  - Off label use [Unknown]
